FAERS Safety Report 14333057 (Version 2)
Quarter: 2018Q1

REPORT INFORMATION
  Report Type: Spontaneous
  Country: CA (occurrence: CA)
  Receive Date: 20171228
  Receipt Date: 20180116
  Transmission Date: 20180509
  Serious: Yes (Other)
  Sender: FDA-Public Use
  Company Number: CA-AMGEN-CANSP2017189189

PATIENT
  Age: 61 Year
  Sex: Female

DRUGS (16)
  1. RESTORIL [Concomitant]
     Active Substance: TEMAZEPAM
     Dosage: 15 MG (1-2 CO), QHS
  2. LOSEC [Concomitant]
     Active Substance: OMEPRAZOLE
     Dosage: UNK
  3. PROLIA [Suspect]
     Active Substance: DENOSUMAB
     Indication: OSTEOPOROSIS
     Dosage: UNK UNK, Q6MO
     Route: 065
     Dates: start: 20170227
  4. FLORINEF ACETATE [Concomitant]
     Active Substance: FLUDROCORTISONE ACETATE
     Dosage: 3/4 CO 3 DAYS/7
  5. VIMOVO [Concomitant]
     Active Substance: ESOMEPRAZOLE MAGNESIUM\NAPROXEN
     Dosage: 500+20 MG, 1 CO BID MORNING AND NIGHT
  6. NEXIUM [Concomitant]
     Active Substance: ESOMEPRAZOLE MAGNESIUM
     Dosage: UNK
  7. PANTOLOC [Concomitant]
     Active Substance: PANTOPRAZOLE SODIUM
     Dosage: 1 CO ID MORNING
     Dates: start: 1993
  8. ZANTAC [Concomitant]
     Active Substance: RANITIDINE HYDROCHLORIDE
     Dosage: 300 MG, 1 CO ID, UNK
  9. SYNTHROID [Concomitant]
     Active Substance: LEVOTHYROXINE SODIUM
     Dosage: UNK
  10. CORTEF [Concomitant]
     Active Substance: HYDROCORTISONE
     Dosage: 15 MG (MORNING), QD
  11. VITAMIN D [Concomitant]
     Active Substance: CHOLECALCIFEROL
     Dosage: 1000 IU 1 CO ID, UNK
  12. CELEBREX [Concomitant]
     Active Substance: CELECOXIB
     Dosage: 100 MG (1-2 CO), QHS
  13. TYLENOL WITH CODEINE [Concomitant]
     Active Substance: ACETAMINOPHEN\CODEINE PHOSPHATE
     Dosage: 3 CO, Q6H
  14. LAX-A-DAY [Concomitant]
     Dosage: ID 1 DAY/2
  15. ROBAXACET [Concomitant]
     Active Substance: ACETAMINOPHEN\METHOCARBAMOL
     Dosage: 400+325 MG,Q6H
  16. SOLU-CORTEF [Concomitant]
     Active Substance: HYDROCORTISONE SODIUM SUCCINATE
     Dosage: UNK UNK, AS NECESSARY
     Route: 030
     Dates: start: 1993

REACTIONS (25)
  - Hypoaesthesia [Recovered/Resolved]
  - Sinusitis [Unknown]
  - Neck pain [Unknown]
  - Arthropathy [Unknown]
  - Gait inability [Unknown]
  - Vertebral foraminal stenosis [Unknown]
  - Diarrhoea [Recovered/Resolved]
  - Groin pain [Unknown]
  - Gastrointestinal disorder [Unknown]
  - Quality of life decreased [Unknown]
  - Gait disturbance [Recovered/Resolved]
  - Fatigue [Not Recovered/Not Resolved]
  - Rib fracture [Unknown]
  - Atypical femur fracture [Unknown]
  - Osteoarthritis [Unknown]
  - Intervertebral disc degeneration [Unknown]
  - Muscular weakness [Recovering/Resolving]
  - Headache [Unknown]
  - Pain in extremity [Unknown]
  - Peritonsillar abscess [Unknown]
  - Pyrexia [Recovered/Resolved]
  - Arthralgia [Unknown]
  - Cervical spinal stenosis [Unknown]
  - Tracheitis [Unknown]
  - Sleep disorder [Unknown]

NARRATIVE: CASE EVENT DATE: 2017
